FAERS Safety Report 12622096 (Version 1)
Quarter: 2016Q3

REPORT INFORMATION
  Report Type: Spontaneous
  Country: US (occurrence: US)
  Receive Date: 20160804
  Receipt Date: 20160804
  Transmission Date: 20161109
  Serious: No
  Sender: FDA-Public Use
  Company Number: US-ANACOR-2016ANA00182

PATIENT
  Sex: Female
  Weight: 95.24 kg

DRUGS (3)
  1. KERYDIN [Suspect]
     Active Substance: TAVABOROLE
     Indication: ONYCHOMYCOSIS
     Dosage: 1 DOSAGE UNITS, 1X/DAY
     Route: 061
     Dates: start: 2016, end: 20160604
  2. UNSPECIFIED MEDICATION FOR HIGH BLOOD PRESSURE [Concomitant]
  3. UNSPECIFIED MEDICATION FOR THYROID [Concomitant]

REACTIONS (1)
  - Drug ineffective [Not Recovered/Not Resolved]
